FAERS Safety Report 5275804-6 (Version None)
Quarter: 2007Q1

REPORT INFORMATION
  Report Type: 
  Country: None (occurrence: None)
  Receive Date: 20070326
  Receipt Date: 20070322
  Transmission Date: 20070707
  Serious: Yes (Hospitalization)
  Sender: FDA-Public Use
  Company Number: FR-GLAXOSMITHKLINE-B0463259A

PATIENT
  Age: 15 Year
  Sex: Male
  Weight: 60 kg

DRUGS (5)
  1. AUGMENTIN '125' [Suspect]
     Dosage: 2UNIT THREE TIMES PER DAY
     Route: 048
     Dates: start: 20070129, end: 20070131
  2. NIFLURIL [Concomitant]
     Indication: PHIMOSIS
     Dosage: 3UNIT PER DAY
     Route: 048
     Dates: start: 20061227, end: 20070102
  3. DAFALGAN [Concomitant]
     Indication: PHIMOSIS
     Route: 048
     Dates: start: 20061227, end: 20070102
  4. TOPALGIC ( FRANCE ) [Concomitant]
     Indication: PHIMOSIS
     Route: 048
     Dates: start: 20061227, end: 20070102
  5. DOLIPRANE [Concomitant]
     Route: 048
     Dates: start: 20070129, end: 20070201

REACTIONS (4)
  - BACK PAIN [None]
  - BLOOD CREATININE ABNORMAL [None]
  - RENAL PAIN [None]
  - VOMITING [None]
